FAERS Safety Report 5520632-7 (Version None)
Quarter: 2007Q4

REPORT INFORMATION
  Report Type: 
  Country: None (occurrence: None)
  Receive Date: 20071119
  Receipt Date: 20071105
  Transmission Date: 20080405
  Serious: Yes (Other)
  Sender: FDA-Public Use
  Company Number: JP-PFIZER INC-2007093543

PATIENT
  Age: 78 Year
  Sex: Female

DRUGS (5)
  1. DALACIN S [Suspect]
     Indication: PYREXIA
     Route: 042
  2. DALACIN S [Suspect]
     Dosage: DAILY DOSE:1200MG
     Route: 030
     Dates: start: 20071024, end: 20071026
  3. TIENAM [Suspect]
     Indication: PYREXIA
     Dosage: DAILY DOSE:1MG
     Route: 030
     Dates: start: 20071024, end: 20071026
  4. CARBENIN [Concomitant]
     Route: 042
  5. AVELOX [Concomitant]

REACTIONS (1)
  - GANGRENE [None]
